FAERS Safety Report 6395379-8 (Version None)
Quarter: 2009Q4

REPORT INFORMATION
  Report Type: 
  Country: None (occurrence: None)
  Receive Date: 20091009
  Receipt Date: 20090930
  Transmission Date: 20100525
  Serious: Yes (Other)
  Sender: FDA-Public Use
  Company Number: US-ELI_LILLY_AND_COMPANY-US200909007144

PATIENT
  Sex: Female

DRUGS (2)
  1. HUMULIN R [Suspect]
     Dates: start: 19970101
  2. HUMULIN N [Suspect]
     Dates: start: 20060101

REACTIONS (4)
  - DIALYSIS [None]
  - MEDICATION ERROR [None]
  - PRODUCT QUALITY ISSUE [None]
  - RENAL FAILURE [None]
